FAERS Safety Report 15264138 (Version 1)
Quarter: 2018Q3

REPORT INFORMATION
  Report Type: Spontaneous
  Country: US (occurrence: US)
  Receive Date: 20180810
  Receipt Date: 20180810
  Transmission Date: 20181010
  Serious: Yes (Other)
  Sender: FDA-Public Use
  Company Number: US-ASTRAZENECA-2018SF00712

PATIENT
  Age: 75 Year

DRUGS (1)
  1. SYMBICORT [Suspect]
     Active Substance: BUDESONIDE\FORMOTEROL FUMARATE DIHYDRATE
     Indication: LUNG DISORDER
     Dosage: 160/4.5 UNKNOWN UNKNOWN
     Route: 055

REACTIONS (5)
  - Diabetes mellitus [Unknown]
  - Malignant melanoma [Unknown]
  - Blood cholesterol increased [Unknown]
  - Hypertension [Unknown]
  - Gout [Unknown]
